FAERS Safety Report 8246352-6 (Version None)
Quarter: 2012Q1

REPORT INFORMATION
  Report Type: 
  Country: None (occurrence: None)
  Receive Date: 20120329
  Receipt Date: 20120329
  Transmission Date: 20120608
  Serious: Yes (Hospitalization)
  Sender: FDA-Public Use
  Company Number: None

PATIENT
  Sex: Female
  Weight: 62 kg

DRUGS (6)
  1. ETOPOSIDE [Suspect]
     Dosage: 340 MG
  2. RITUXIMAB (MOAB C2B8 ANTI CD 20, CHIMERIC) [Suspect]
     Dosage: 640 MG
  3. CYCLOPHOSPHAMIDE [Suspect]
     Dosage: 1275 MG
  4. DOXORUBICIN HCL [Suspect]
     Dosage: 68 MG
  5. PREDNISONE TAB [Suspect]
     Dosage: 1000 MG
  6. VINCRISTINE SULFATE [Suspect]
     Dosage: 2.72 MG

REACTIONS (8)
  - STOMACH MASS [None]
  - THROMBOSIS [None]
  - HAEMOGLOBIN DECREASED [None]
  - GASTROSPLENIC FISTULA [None]
  - GASTRIC ULCER HAEMORRHAGE [None]
  - HAEMATEMESIS [None]
  - HAEMATOCHEZIA [None]
  - ABDOMINAL PAIN [None]
